FAERS Safety Report 11713101 (Version 11)
Quarter: 2017Q1

REPORT INFORMATION
  Report Type: Spontaneous
  Country: US (occurrence: US)
  Receive Date: 20151109
  Receipt Date: 20170315
  Transmission Date: 20170428
  Serious: No
  Sender: FDA-Public Use
  Company Number: PHEH2015US022914

PATIENT
  Sex: Female
  Weight: 52.15 kg

DRUGS (2)
  1. ONDANSETRON HYDROCHLORIDE. [Suspect]
     Active Substance: ONDANSETRON HYDROCHLORIDE
     Indication: VOMITING IN PREGNANCY
     Dosage: 04 MG TO 08 MG, BID
     Route: 048
     Dates: start: 20140325, end: 2014
  2. ZOFRAN [Suspect]
     Active Substance: ONDANSETRON HYDROCHLORIDE
     Indication: VOMITING IN PREGNANCY
     Dosage: 4 MG TO 8 MG, BID
     Route: 048
     Dates: start: 20140325, end: 20140630

REACTIONS (8)
  - Injury [Unknown]
  - Anxiety [Unknown]
  - Maternal exposure during pregnancy [Unknown]
  - Pain [Unknown]
  - Depression [Unknown]
  - Emotional distress [Unknown]
  - Product use issue [Unknown]
  - Anhedonia [Unknown]
